FAERS Safety Report 4698449-5 (Version None)
Quarter: 2005Q2

REPORT INFORMATION
  Report Type: 
  Country: None (occurrence: None)
  Receive Date: 20050622
  Receipt Date: 20050609
  Transmission Date: 20051028
  Serious: Yes (Hospitalization, Other)
  Sender: FDA-Public Use
  Company Number: 2005087548

PATIENT
  Sex: Female
  Weight: 86.1834 kg

DRUGS (4)
  1. ZOLOFT [Suspect]
     Indication: ANXIETY
     Dosage: 50 MG (50 MG, 1 IN 1 D), ORAL
     Route: 048
     Dates: start: 20050418, end: 20050521
  2. ZOLOFT [Suspect]
     Indication: POST-TRAUMATIC STRESS DISORDER
     Dosage: 50 MG (50 MG, 1 IN 1 D), ORAL
     Route: 048
     Dates: start: 20050418, end: 20050521
  3. DEPAKOTE [Suspect]
     Indication: ANXIETY
     Dosage: (1 IN 1 D), ORAL
     Route: 048
     Dates: start: 20050418, end: 20050521
  4. DEPAKOTE [Suspect]
     Indication: POST-TRAUMATIC STRESS DISORDER
     Dosage: (1 IN 1 D), ORAL
     Route: 048
     Dates: start: 20050418, end: 20050521

REACTIONS (9)
  - ACUTE PSYCHOSIS [None]
  - ANXIETY [None]
  - CONDITION AGGRAVATED [None]
  - DRUG INTERACTION [None]
  - HALLUCINATION, AUDITORY [None]
  - MIGRAINE [None]
  - PANIC ATTACK [None]
  - PARANOIA [None]
  - POST-TRAUMATIC STRESS DISORDER [None]
